FAERS Safety Report 6882292-2 (Version None)
Quarter: 2010Q3

REPORT INFORMATION
  Report Type: 
  Country: None (occurrence: None)
  Receive Date: 20100729
  Receipt Date: 20100722
  Transmission Date: 20110219
  Serious: Yes (Hospitalization)
  Sender: FDA-Public Use
  Company Number: FR-BRISTOL-MYERS SQUIBB COMPANY-15205917

PATIENT
  Age: 62 Year
  Sex: Male

DRUGS (3)
  1. SUSTIVA [Suspect]
     Indication: HIV INFECTION
     Dates: start: 20091121, end: 20091213
  2. GLUCOPHAGE [Suspect]
     Indication: TYPE 2 DIABETES MELLITUS
     Dates: start: 19790101, end: 20091213
  3. ABACAVIR SULFATE AND LAMIVUDINE [Suspect]
     Indication: HIV INFECTION
     Dosage: 1DF=600MG/300MG
     Dates: start: 20091121, end: 20091213

REACTIONS (4)
  - ESCHERICHIA SEPSIS [None]
  - LACTIC ACIDOSIS [None]
  - PYELONEPHRITIS [None]
  - RENAL CELL CARCINOMA [None]
